FAERS Safety Report 24586505 (Version 1)
Quarter: 2024Q4

REPORT INFORMATION
  Report Type: Report from Study
  Country: NL (occurrence: NL)
  Receive Date: 20241106
  Receipt Date: 20241106
  Transmission Date: 20250114
  Serious: Yes (Death)
  Sender: ABBVIE
  Company Number: NL-ABBVIE-5991775

PATIENT
  Age: 86 Year
  Sex: Female

DRUGS (9)
  1. CARBIDOPA\LEVODOPA [Suspect]
     Active Substance: CARBIDOPA\LEVODOPA
     Indication: Parkinson^s disease
     Dosage: MD 12.5 ML; CD 5.7 ML/H; ED 3.0 ML
     Route: 050
     Dates: start: 20240601, end: 20240830
  2. CARBIDOPA\LEVODOPA [Suspect]
     Active Substance: CARBIDOPA\LEVODOPA
     Dosage: MD 12.5 ML; CD 5.7 ML/H; ED 3.0 ML?LAST ADMIN DATE: 2024?DURATION TEXT: REMAINS AT 16 HOURS
     Route: 050
     Dates: start: 20240830
  3. CARBIDOPA\LEVODOPA [Suspect]
     Active Substance: CARBIDOPA\LEVODOPA
     Dosage: DURATION TEXT: REMAINS AT 16 HOURS
     Route: 050
     Dates: end: 20241031
  4. CARBIDOPA\LEVODOPA [Suspect]
     Active Substance: CARBIDOPA\LEVODOPA
     Route: 050
     Dates: start: 20190128
  5. POLYETHYLENE GLYCOLS [Concomitant]
     Active Substance: POLYETHYLENE GLYCOLS
     Indication: Abnormal faeces
  6. SYMMETREL [Concomitant]
     Active Substance: AMANTADINE HYDROCHLORIDE
     Indication: Parkinson^s disease
  7. LEVODOPA/CARBIDOPA PCH RETARD [Concomitant]
     Indication: Parkinson^s disease
     Dosage: 125 MILLIGRAM?DURATION TEXT: PERMANENT STOP
     Route: 048
  8. RIVASTIGMINE [Concomitant]
     Active Substance: RIVASTIGMINE
     Indication: Hallucination
  9. QUETIAPINE [Concomitant]
     Active Substance: QUETIAPINE
     Indication: Hallucination

REACTIONS (1)
  - Euthanasia [Fatal]

NARRATIVE: CASE EVENT DATE: 20241031
